FAERS Safety Report 5774025-8 (Version None)
Quarter: 2008Q2

REPORT INFORMATION
  Report Type: 
  Country: None (occurrence: None)
  Receive Date: 20080616
  Receipt Date: 20080602
  Transmission Date: 20081010
  Serious: Yes (Hospitalization)
  Sender: FDA-Public Use
  Company Number: FR-ROCHE-568225

PATIENT
  Sex: Female

DRUGS (7)
  1. PEGASYS [Suspect]
     Dosage: FORM: INJECTABLE SOLUTION
     Route: 058
     Dates: start: 20080108, end: 20080408
  2. COPEGUS [Suspect]
     Route: 048
     Dates: start: 20080108, end: 20080408
  3. NORDETTE-21 [Concomitant]
     Indication: CONTRACEPTION
     Route: 048
     Dates: start: 20071001, end: 20080408
  4. NORDETTE-21 [Concomitant]
     Route: 048
     Dates: start: 20071001, end: 20080408
  5. DI ANTALVIC [Concomitant]
     Indication: HEADACHE
     Dosage: 4 DOSES DAILY
     Route: 048
     Dates: start: 20080308, end: 20080408
  6. DI ANTALVIC [Concomitant]
     Dosage: 4 DOSES DAILY
     Route: 048
     Dates: start: 20080308, end: 20080408
  7. DAFALGAN [Concomitant]
     Indication: HEADACHE
     Route: 048
     Dates: start: 20080308, end: 20080408

REACTIONS (3)
  - AUTOIMMUNE HEPATITIS [None]
  - CYTOLYTIC HEPATITIS [None]
  - JAUNDICE [None]
